FAERS Safety Report 25259619 (Version 6)
Quarter: 2025Q4

REPORT INFORMATION
  Report Type: Report from Study
  Country: US (occurrence: None)
  Receive Date: 20250501
  Receipt Date: 20251021
  Transmission Date: 20260117
  Serious: Yes (Hospitalization, Other)
  Sender: UCB
  Company Number: US-UCBSA-2025024894

PATIENT
  Age: 53 Year

DRUGS (2)
  1. BIMEKIZUMAB [Suspect]
     Active Substance: BIMEKIZUMAB
     Indication: Psoriatic arthropathy
     Dosage: 320 MILLIGRAM, EV 4 WEEKS
  2. BIMEKIZUMAB [Suspect]
     Active Substance: BIMEKIZUMAB
     Dosage: 320 MILLIGRAM, EV 8 WEEKS

REACTIONS (7)
  - Fournier^s gangrene [Recovering/Resolving]
  - Fasciotomy [Recovered/Resolved]
  - Psoriasis [Recovering/Resolving]
  - Fistula [Recovering/Resolving]
  - Fistula repair [Recovering/Resolving]
  - Infected fistula [Unknown]
  - Incorrect dose administered [Unknown]
